FAERS Safety Report 8422058-5 (Version None)
Quarter: 2012Q2

REPORT INFORMATION
  Report Type: 
  Country: None (occurrence: None)
  Receive Date: 20120608
  Receipt Date: 20120524
  Transmission Date: 20120825
  Serious: Yes (Hospitalization)
  Sender: FDA-Public Use
  Company Number: US-ROCHE-1033902

PATIENT
  Sex: Female

DRUGS (7)
  1. BLINDED BI 201335 (HCV PROTEASE INHIBITOR) [Suspect]
     Indication: HEPATITIS C
     Route: 048
     Dates: start: 20111208, end: 20111227
  2. RIBAVIRIN [Suspect]
     Indication: HEPATITIS C
     Dosage: 200 MG
     Route: 048
     Dates: start: 20111208, end: 20111227
  3. ZOLOFT [Concomitant]
     Indication: DEPRESSION
     Route: 048
     Dates: start: 19770601
  4. ALLEGRA-D 12 HOUR [Concomitant]
     Indication: SINUSITIS
     Dates: start: 20111212
  5. PEGASYS [Suspect]
     Indication: HEPATITIS C
     Route: 058
     Dates: start: 20111208, end: 20111227
  6. ZESTRIL [Concomitant]
     Indication: HYPERTENSION
     Route: 048
     Dates: start: 19770601
  7. SYNTHROID [Concomitant]
     Indication: HYPOTHYROIDISM
     Route: 048

REACTIONS (5)
  - LIVER DISORDER [None]
  - ASCITES [None]
  - CHOLECYSTITIS [None]
  - DIARRHOEA [None]
  - THROMBOCYTOPENIA [None]
